FAERS Safety Report 11643826 (Version 1)
Quarter: 2015Q4

REPORT INFORMATION
  Report Type: Spontaneous
  Country: US (occurrence: None)
  Receive Date: 20151019
  Receipt Date: 20151019
  Transmission Date: 20160304
  Serious: Yes (Disabling)
  Sender: FDA-Public Use
  Company Number: None

PATIENT
  Age: 55 Year
  Sex: Female
  Weight: 99.79 kg

DRUGS (1)
  1. NO DRIP [Suspect]
     Active Substance: OXYMETAZOLINE HYDROCHLORIDE
     Indication: NASAL CONGESTION
     Dosage: 2-3 SPRAYS?2 DOSE IN 24 HR NOMORE?ME. 1SPRAY ONCE AT NIGHT 1 SPRAY IN MORNING.
     Route: 045
     Dates: start: 20150213, end: 20150214

REACTIONS (5)
  - Anosmia [None]
  - Application site pain [None]
  - Ageusia [None]
  - Erythema [None]
  - Paraesthesia [None]

NARRATIVE: CASE EVENT DATE: 20150213
